FAERS Safety Report 26043332 (Version 2)
Quarter: 2025Q4

REPORT INFORMATION
  Report Type: Spontaneous
  Country: US (occurrence: US)
  Receive Date: 20251113
  Receipt Date: 20251214
  Transmission Date: 20260118
  Serious: No
  Sender: BIOGEN
  Company Number: US-BIOGEN-2089206

PATIENT
  Sex: Male

DRUGS (1)
  1. SKYCLARYS [Suspect]
     Active Substance: OMAVELOXOLONE
     Indication: Friedreich^s ataxia
     Dates: start: 20251012

REACTIONS (6)
  - Insomnia [Unknown]
  - Hyperhidrosis [Unknown]
  - Feeling hot [Unknown]
  - Product dose omission issue [Unknown]
  - Cold sweat [Unknown]
  - Nervousness [Unknown]
